FAERS Safety Report 12746746 (Version 1)
Quarter: 2016Q3

REPORT INFORMATION
  Report Type: Spontaneous
  Country: US (occurrence: US)
  Receive Date: 20160915
  Receipt Date: 20160915
  Transmission Date: 20161109
  Serious: No
  Sender: FDA-Public Use
  Company Number: US-ASTELLAS-2015US031880

PATIENT
  Age: 85 Year
  Sex: Male

DRUGS (2)
  1. XTANDI [Suspect]
     Active Substance: ENZALUTAMIDE
     Indication: PROSTATE CANCER
  2. XTANDI [Suspect]
     Active Substance: ENZALUTAMIDE
     Indication: PROSTATE CANCER METASTATIC
     Route: 048
     Dates: start: 20150725

REACTIONS (8)
  - Dysphonia [Unknown]
  - Dysphonia [Unknown]
  - Dysphonia [Unknown]
  - Medication error [Unknown]
  - Throat irritation [Unknown]
  - Speech disorder [Unknown]
  - Dysphonia [Unknown]
  - Dysphagia [Unknown]

NARRATIVE: CASE EVENT DATE: 20150902
